FAERS Safety Report 24783200 (Version 4)
Quarter: 2025Q3

REPORT INFORMATION
  Report Type: Spontaneous
  Country: AR (occurrence: AR)
  Receive Date: 20241227
  Receipt Date: 20250729
  Transmission Date: 20251021
  Serious: Yes (Death, Hospitalization, Other)
  Sender: SANDOZ
  Company Number: AR-002147023-NVSC2024AR238058

PATIENT
  Age: 54 Year
  Sex: Female

DRUGS (3)
  1. FULVESTRANT [Suspect]
     Active Substance: FULVESTRANT
     Indication: Product used for unknown indication
     Route: 065
  2. KISQALI [Suspect]
     Active Substance: RIBOCICLIB SUCCINATE
     Indication: Breast cancer metastatic
     Dosage: 600 MG, QD
     Route: 065
     Dates: start: 20240429
  3. KISQALI [Suspect]
     Active Substance: RIBOCICLIB SUCCINATE
     Route: 065
     Dates: start: 2020

REACTIONS (13)
  - Ascites [Fatal]
  - Pulmonary oedema [Fatal]
  - Dyspnoea [Fatal]
  - Decreased appetite [Fatal]
  - General physical health deterioration [Fatal]
  - Ovarian neoplasm [Fatal]
  - Breast cancer metastatic [Fatal]
  - Malignant neoplasm progression [Fatal]
  - Ovarian cyst [Unknown]
  - Concomitant disease aggravated [Unknown]
  - Anxiety [Unknown]
  - Product use issue [Unknown]
  - Product distribution issue [Unknown]

NARRATIVE: CASE EVENT DATE: 20240901
